FAERS Safety Report 25819931 (Version 1)
Quarter: 2025Q3

REPORT INFORMATION
  Report Type: Spontaneous
  Country: JP (occurrence: JP)
  Receive Date: 20250918
  Receipt Date: 20250918
  Transmission Date: 20251020
  Serious: Yes (Hospitalization)
  Sender: ORGANON
  Company Number: JP-ORGANON-O2509JPN001296

PATIENT
  Age: 84 Year
  Sex: Female

DRUGS (1)
  1. CARBIDOPA\LEVODOPA [Interacting]
     Active Substance: CARBIDOPA\LEVODOPA
     Route: 048

REACTIONS (4)
  - Herpes zoster [Unknown]
  - Drug interaction [Unknown]
  - Dyskinesia [Unknown]
  - On and off phenomenon [Unknown]
